FAERS Safety Report 15493538 (Version 1)
Quarter: 2018Q4

REPORT INFORMATION
  Report Type: Spontaneous
  Country: US (occurrence: US)
  Receive Date: 20181004
  Receipt Date: 20181004
  Transmission Date: 20190205
  Serious: Yes (Other)
  Sender: FDA-Public Use
  Company Number: None

PATIENT
  Age: 57 Year
  Sex: Female

DRUGS (3)
  1. LISINOPRIL 10 [Concomitant]
     Active Substance: LISINOPRIL
  2. OMEPRAZOLE 40 [Concomitant]
  3. GLECAPREVIR/PIBRENTASVIR [Suspect]
     Active Substance: GLECAPREVIR\PIBRENTASVIR
     Indication: CHRONIC HEPATITIS C
     Route: 048
     Dates: start: 20180910, end: 20181001

REACTIONS (1)
  - Jaundice [None]

NARRATIVE: CASE EVENT DATE: 20181003
